FAERS Safety Report 6438963-5 (Version None)
Quarter: 2009Q4

REPORT INFORMATION
  Report Type: 
  Country: None (occurrence: None)
  Receive Date: 20091113
  Receipt Date: 20091103
  Transmission Date: 20100525
  Serious: Yes (Hospitalization, Other)
  Sender: FDA-Public Use
  Company Number: US-ABBOTT-09P-163-0606340-00

PATIENT
  Sex: Female
  Weight: 120.31 kg

DRUGS (4)
  1. HUMIRA [Suspect]
     Indication: PSORIASIS
     Route: 058
     Dates: start: 20050101
  2. HUMIRA [Suspect]
     Indication: PSORIATIC ARTHROPATHY
  3. PSORITANE [Suspect]
     Indication: PSORIASIS
     Route: 048
     Dates: start: 20050101, end: 20080101
  4. PSORITANE [Suspect]

REACTIONS (6)
  - CATARACT [None]
  - CATARACT OPERATION COMPLICATION [None]
  - DACRYOSTENOSIS ACQUIRED [None]
  - DRY EYE [None]
  - EYE DISORDER [None]
  - PSORIASIS [None]
